FAERS Safety Report 7597853-5 (Version None)
Quarter: 2011Q3

REPORT INFORMATION
  Report Type: 
  Country: None (occurrence: None)
  Receive Date: 20110708
  Receipt Date: 20110704
  Transmission Date: 20111222
  Serious: Yes (Hospitalization)
  Sender: FDA-Public Use
  Company Number: GB-MERCK-1107GBR00013

PATIENT
  Age: 61 Year
  Sex: Female

DRUGS (7)
  1. CALCIUM CARBONATE AND CHOLECALCIFEROL [Concomitant]
     Route: 048
  2. FOSAMAX [Suspect]
     Indication: OSTEOPOROSIS PROPHYLAXIS
     Route: 048
     Dates: start: 20010114, end: 20110616
  3. FOLIC ACID [Concomitant]
     Route: 048
  4. ACETAMINOPHEN AND PROPOXYPHENE HYDROCHLORIDE [Concomitant]
     Route: 048
  5. SULFASALAZINE [Concomitant]
     Route: 048
  6. MELOXICAM [Concomitant]
     Route: 048
  7. METHOTREXATE [Concomitant]
     Route: 048

REACTIONS (1)
  - FEMUR FRACTURE [None]
